FAERS Safety Report 11158554 (Version 1)
Quarter: 2015Q2

REPORT INFORMATION
  Report Type: Spontaneous
  Country: US (occurrence: None)
  Receive Date: 20150602
  Receipt Date: 20150602
  Transmission Date: 20150821
  Serious: Yes (Hospitalization)
  Sender: FDA-Public Use
  Company Number: None

PATIENT
  Age: 72 Year
  Sex: Male
  Weight: 120.7 kg

DRUGS (1)
  1. PACLITAXEL. [Suspect]
     Active Substance: PACLITAXEL
     Indication: NEOPLASM MALIGNANT
     Dates: start: 20140709, end: 20140709

REACTIONS (4)
  - Chest pain [None]
  - Cough [None]
  - Wheezing [None]
  - Hypotension [None]

NARRATIVE: CASE EVENT DATE: 20140702
